FAERS Safety Report 23247212 (Version 1)
Quarter: 2023Q4

REPORT INFORMATION
  Report Type: Spontaneous
  Country: EG (occurrence: EG)
  Receive Date: 20231130
  Receipt Date: 20231130
  Transmission Date: 20240110
  Serious: Yes (Death)
  Sender: FDA-Public Use
  Company Number: EG-PFIZER INC-PV202300193091

PATIENT
  Age: 9 Day
  Sex: Female
  Weight: 1.445 kg

DRUGS (2)
  1. MEROPENEM [Suspect]
     Active Substance: MEROPENEM
     Indication: Sepsis
     Dosage: 20 MG/KG, 3X/DAY
     Route: 042
     Dates: start: 20231027, end: 20231102
  2. VANCOMYCIN [Suspect]
     Active Substance: VANCOMYCIN
     Indication: Sepsis
     Dosage: 10 MG/KG, 2X/DAY
     Route: 042
     Dates: start: 20231027, end: 20231102

REACTIONS (2)
  - Thrombocytopenia neonatal [Fatal]
  - Off label use [Unknown]

NARRATIVE: CASE EVENT DATE: 20231027
